FAERS Safety Report 16969832 (Version 21)
Quarter: 2025Q2

REPORT INFORMATION
  Report Type: Report from Study
  Country: US (occurrence: US)
  Receive Date: 20191029
  Receipt Date: 20250428
  Transmission Date: 20250717
  Serious: Yes (Hospitalization, Other)
  Sender: TAKEDA
  Company Number: US-SHIRE-US201936239

PATIENT
  Age: 68 Year
  Sex: Female
  Weight: 63 kg

DRUGS (36)
  1. HUMAN IMMUNOGLOBULIN G [Suspect]
     Active Substance: HUMAN IMMUNOGLOBULIN G
     Indication: IgG deficiency
     Dosage: 12 GRAM, Q2WEEKS
     Dates: start: 20180508
  2. HUMAN IMMUNOGLOBULIN G [Suspect]
     Active Substance: HUMAN IMMUNOGLOBULIN G
     Dosage: 12 GRAM, Q2WEEKS
     Dates: start: 20181018
  3. DIPHENHYDRAMINE HYDROCHLORIDE [Concomitant]
     Active Substance: DIPHENHYDRAMINE HYDROCHLORIDE
  4. METOPROLOL SUCCINATE [Concomitant]
     Active Substance: METOPROLOL SUCCINATE
  5. VITAMIN D3 [Concomitant]
     Active Substance: CHOLECALCIFEROL
  6. EPINEPHRINE [Concomitant]
     Active Substance: EPINEPHRINE
  7. LISINOPRIL [Concomitant]
     Active Substance: LISINOPRIL
  8. ALLEGRA ALLERGY [Concomitant]
     Active Substance: FEXOFENADINE HYDROCHLORIDE
  9. ASPIRIN [Concomitant]
     Active Substance: ASPIRIN
  10. TRELEGY ELLIPTA [Concomitant]
     Active Substance: FLUTICASONE FUROATE\UMECLIDINIUM BROMIDE\VILANTEROL TRIFENATATE
  11. OMEPRAZOLE [Concomitant]
     Active Substance: OMEPRAZOLE
  12. ACETAMINOPHEN [Concomitant]
     Active Substance: ACETAMINOPHEN
  13. SINGULAIR [Concomitant]
     Active Substance: MONTELUKAST SODIUM
  14. FAMOTIDINE [Concomitant]
     Active Substance: FAMOTIDINE
  15. CALCIUM [Concomitant]
     Active Substance: CALCIUM
  16. LIDOCAINE [Concomitant]
     Active Substance: LIDOCAINE
  17. MODERNA COVID-19 VACCINE [Concomitant]
     Active Substance: ELASOMERAN
  18. IPRATROPIUM BROMIDE [Concomitant]
     Active Substance: IPRATROPIUM BROMIDE
  19. PAZEO [Concomitant]
     Active Substance: OLOPATADINE HYDROCHLORIDE
  20. ZOFRAN [Concomitant]
     Active Substance: ONDANSETRON HYDROCHLORIDE
  21. CETIRIZINE [Concomitant]
     Active Substance: CETIRIZINE HYDROCHLORIDE
  22. LEVAQUIN [Concomitant]
     Active Substance: LEVOFLOXACIN
  23. MUPIROCIN [Concomitant]
     Active Substance: MUPIROCIN
  24. NYSTATIN [Concomitant]
     Active Substance: NYSTATIN
  25. AUGMENTIN [Concomitant]
     Active Substance: AMOXICILLIN\CLAVULANATE POTASSIUM
  26. RANITIDINE [Concomitant]
     Active Substance: RANITIDINE
  27. LIPITOR [Concomitant]
     Active Substance: ATORVASTATIN CALCIUM
  28. ALBUTEROL SULFATE [Concomitant]
     Active Substance: ALBUTEROL SULFATE
  29. KRILL OIL [Concomitant]
     Active Substance: DIETARY SUPPLEMENT\KRILL OIL
  30. PAPAIN [Concomitant]
     Active Substance: PAPAIN
  31. PROAIR HFA [Concomitant]
     Active Substance: ALBUTEROL SULFATE
  32. DEXAMETHASONE\NEOMYCIN SULFATE\POLYMYXIN B SULFATE [Concomitant]
     Active Substance: DEXAMETHASONE\NEOMYCIN SULFATE\POLYMYXIN B SULFATE
  33. FOSAMAX [Concomitant]
     Active Substance: ALENDRONATE SODIUM
  34. SPIRIVA [Concomitant]
     Active Substance: TIOTROPIUM BROMIDE MONOHYDRATE
  35. EZETIMIBE [Concomitant]
     Active Substance: EZETIMIBE
  36. ROSUVASTATIN CALCIUM [Concomitant]
     Active Substance: ROSUVASTATIN CALCIUM

REACTIONS (22)
  - COVID-19 pneumonia [Unknown]
  - Road traffic accident [Unknown]
  - Neck injury [Unknown]
  - Back injury [Unknown]
  - Diverticulitis [Unknown]
  - Multiple allergies [Unknown]
  - Decreased immune responsiveness [Unknown]
  - Intervertebral disc protrusion [Unknown]
  - Fall [Unknown]
  - Illness [Unknown]
  - Insurance issue [Unknown]
  - Neck pain [Unknown]
  - Fungal infection [Unknown]
  - Bronchitis [Unknown]
  - Herpes zoster [Unknown]
  - Product dose omission issue [Unknown]
  - Product use issue [Unknown]
  - Upper respiratory tract infection [Unknown]
  - Asthma [Unknown]
  - Infusion site erythema [Unknown]
  - Erythema [Unknown]
  - Back pain [Unknown]

NARRATIVE: CASE EVENT DATE: 20191022
